FAERS Safety Report 10463190 (Version 1)
Quarter: 2014Q3

REPORT INFORMATION
  Report Type: Spontaneous
  Country: US (occurrence: US)
  Receive Date: 20140919
  Receipt Date: 20140919
  Transmission Date: 20150326
  Serious: No
  Sender: FDA-Public Use
  Company Number: US-BIOGENIDEC-2014BI082992

PATIENT
  Sex: Male

DRUGS (5)
  1. COPAXONE [Concomitant]
     Active Substance: GLATIRAMER ACETATE
  2. REBIF [Concomitant]
     Active Substance: INTERFERON BETA-1A
  3. GILENYA [Concomitant]
     Active Substance: FINGOLIMOD HYDROCHLORIDE
  4. AVONEX [Suspect]
     Active Substance: INTERFERON BETA-1A
     Indication: PRODUCT USED FOR UNKNOWN INDICATION
     Route: 030
  5. BETASERON [Concomitant]
     Active Substance: INTERFERON BETA-1B

REACTIONS (3)
  - Decreased immune responsiveness [Unknown]
  - Drug ineffective [Unknown]
  - Multiple sclerosis relapse [Unknown]
